FAERS Safety Report 17483112 (Version 4)
Quarter: 2020Q2

REPORT INFORMATION
  Report Type: Spontaneous
  Country: US (occurrence: US)
  Receive Date: 20200302
  Receipt Date: 20200616
  Transmission Date: 20200713
  Serious: Yes (Other)
  Sender: FDA-Public Use
  Company Number: US-PFIZER INC-2020092262

PATIENT
  Age: 56 Year
  Sex: Female

DRUGS (1)
  1. XELJANZ XR [Suspect]
     Active Substance: TOFACITINIB CITRATE
     Indication: RHEUMATOID ARTHRITIS
     Dosage: 11 MG, DAILY (IN THE EVENING INSTEAD IN THE MORNING)
     Route: 048
     Dates: start: 201911

REACTIONS (8)
  - Fall [Unknown]
  - Urinary tract infection [Unknown]
  - Alopecia [Unknown]
  - Joint dislocation [Unknown]
  - Gait disturbance [Not Recovered/Not Resolved]
  - Product dose omission [Unknown]
  - Condition aggravated [Not Recovered/Not Resolved]
  - Drug ineffective [Unknown]

NARRATIVE: CASE EVENT DATE: 201912
